FAERS Safety Report 19560110 (Version 4)
Quarter: 2021Q3

REPORT INFORMATION
  Report Type: Spontaneous
  Country: RU (occurrence: RU)
  Receive Date: 20210716
  Receipt Date: 20210811
  Transmission Date: 20211014
  Serious: Yes (Death, Other)
  Sender: FDA-Public Use
  Company Number: RU-HIKMA PHARMACEUTICALS USA INC.-RU-H14001-21-03194

PATIENT
  Age: 43 Year
  Sex: Female

DRUGS (7)
  1. CARBOPLATIN. [Suspect]
     Active Substance: CARBOPLATIN
     Indication: CERVIX CARCINOMA
     Dosage: 5 MG*MIN/ML
     Route: 042
     Dates: end: 20210609
  2. KETOPROFEN. [Concomitant]
     Active Substance: KETOPROFEN
     Indication: BACK PAIN
     Route: 065
     Dates: start: 20210118, end: 20210306
  3. BCD?100/PLACEBO [Concomitant]
     Indication: CERVIX CARCINOMA
     Route: 065
     Dates: start: 20210224, end: 20210609
  4. PACLITAXEL. [Concomitant]
     Active Substance: PACLITAXEL
     Indication: CERVIX CARCINOMA
     Route: 065
     Dates: start: 20210224, end: 20210609
  5. IRON SULFATE [Concomitant]
     Active Substance: FERROUS SULFATE ANHYDROUS
     Indication: ANAEMIA
     Route: 065
     Dates: start: 20210518
  6. RIBOCARBO?L [Suspect]
     Active Substance: CARBOPLATIN
     Indication: CERVIX CARCINOMA
     Route: 042
     Dates: start: 20210225, end: 20210317
  7. BEVACIZUMAB. [Concomitant]
     Active Substance: BEVACIZUMAB
     Indication: CERVIX CARCINOMA
     Route: 065
     Dates: start: 20210225, end: 20210609

REACTIONS (1)
  - Pulmonary embolism [Fatal]

NARRATIVE: CASE EVENT DATE: 20210615
